FAERS Safety Report 21473798 (Version 1)
Quarter: 2022Q4

REPORT INFORMATION
  Report Type: Spontaneous
  Country: TR (occurrence: TR)
  Receive Date: 20221018
  Receipt Date: 20221018
  Transmission Date: 20230113
  Serious: Yes (Hospitalization, Other)
  Sender: FDA-Public Use
  Company Number: TR-GLAXOSMITHKLINE-TRCH2022GSK039044

PATIENT

DRUGS (2)
  1. DICLOFENAC SODIUM [Suspect]
     Active Substance: DICLOFENAC SODIUM
     Indication: Myalgia
     Dosage: 50 MG, QD
  2. DICLOFENAC SODIUM [Suspect]
     Active Substance: DICLOFENAC SODIUM
     Dosage: 11250 MG, 15 DICLOFENAC SODIUM TABLETS (750 MG)

REACTIONS (8)
  - Nephropathy toxic [Recovered/Resolved]
  - Suicide attempt [Unknown]
  - Gastrointestinal tract irritation [Recovered/Resolved]
  - Haemorrhage [Recovered/Resolved]
  - Hepatotoxicity [Recovered/Resolved]
  - Abdominal pain [Recovered/Resolved]
  - Peritonitis [Recovered/Resolved]
  - Duodenal ulcer perforation [Recovered/Resolved]
